FAERS Safety Report 8303567-6 (Version None)
Quarter: 2012Q2

REPORT INFORMATION
  Report Type: 
  Country: None (occurrence: None)
  Receive Date: 20120418
  Receipt Date: 20120410
  Transmission Date: 20120825
  Serious: Yes (Hospitalization)
  Sender: FDA-Public Use
  Company Number: 2012SP019366

PATIENT
  Age: 20 Year
  Sex: Female
  Weight: 57 kg

DRUGS (2)
  1. RIBAVIRIN [Suspect]
     Indication: HEPATITIS C
     Dosage: 1000 MG;QD;
     Dates: start: 20050901
  2. PEGINTERFERON ALFA-2B [Suspect]
     Indication: HEPATITIS C
     Dosage: 1.5 MCG/KG;QW;
     Dates: start: 20050901

REACTIONS (1)
  - AUTOIMMUNE HEPATITIS [None]
